FAERS Safety Report 14864482 (Version 2)
Quarter: 2018Q2

REPORT INFORMATION
  Report Type: Spontaneous
  Country: US (occurrence: US)
  Receive Date: 20180508
  Receipt Date: 20180614
  Transmission Date: 20180711
  Serious: Yes (Hospitalization)
  Sender: FDA-Public Use
  Company Number: US-ACTELION-A-NJ2018-171656

PATIENT
  Age: 66 Year
  Sex: Female

DRUGS (2)
  1. VALCHLOR [Suspect]
     Active Substance: MECHLORETHAMINE
     Indication: MYCOSIS FUNGOIDES
     Dosage: UNK
     Route: 061
     Dates: start: 20180129
  2. DILANTIN [Concomitant]
     Active Substance: PHENYTOIN

REACTIONS (4)
  - Fatigue [Unknown]
  - Pruritus [Not Recovered/Not Resolved]
  - Myocardial infarction [Unknown]
  - Colitis [Unknown]

NARRATIVE: CASE EVENT DATE: 2018
